FAERS Safety Report 25789707 (Version 2)
Quarter: 2025Q3

REPORT INFORMATION
  Report Type: Spontaneous
  Country: EU (occurrence: EU)
  Receive Date: 20250911
  Receipt Date: 20250921
  Transmission Date: 20251021
  Serious: Yes (Other)
  Sender: BOEHRINGER INGELHEIM
  Company Number: EU-BoehringerIngelheim-2025-BI-093961

PATIENT
  Sex: Male
  Weight: 64 kg

DRUGS (3)
  1. OFEV [Suspect]
     Active Substance: NINTEDANIB
     Indication: Idiopathic pulmonary fibrosis
     Dosage: MORNING AND EVENING
     Dates: start: 2019
  2. OXYGEN [Concomitant]
     Active Substance: OXYGEN
     Indication: Product used for unknown indication
  3. PIRFENIDONE [Concomitant]
     Active Substance: PIRFENIDONE
     Indication: Product used for unknown indication

REACTIONS (1)
  - Idiopathic pulmonary fibrosis [Unknown]
